FAERS Safety Report 4845285-2 (Version None)
Quarter: 2005Q4

REPORT INFORMATION
  Report Type: 
  Country: None (occurrence: None)
  Receive Date: 20051129
  Receipt Date: 20051109
  Transmission Date: 20060501
  Serious: Yes (Hospitalization, Other)
  Sender: FDA-Public Use
  Company Number: US_0410107447

PATIENT
  Age: 47 Year
  Sex: Female
  Weight: 106.8 kg

DRUGS (24)
  1. ZYPREXA [Suspect]
     Indication: SCHIZOAFFECTIVE DISORDER
     Dosage: 20 MG
     Dates: start: 19990228, end: 20050101
  2. FLUOXETINE HYDROCHLORIDE (FLUOXETINE HYDROCHLORIDE) CAPSULE [Concomitant]
  3. DIVALPROEX SODIUM (DIVALPROEX SODIUM) [Concomitant]
  4. BUPROPION HCL [Concomitant]
  5. CITALOPRAM HYDROBROMIDE [Concomitant]
  6. MIRTAZAPINE [Concomitant]
  7. PAROXETINE (PAROXETINE) [Concomitant]
  8. SERTRALINE HCL [Concomitant]
  9. GLYBURIDE [Concomitant]
  10. GEODON [Concomitant]
  11. TRAZODONE HCL [Concomitant]
  12. VISTARIL [Concomitant]
  13. ANAFRANIL [Concomitant]
  14. AMOXICILLIN [Concomitant]
  15. HYDROCHLOROTHIAZIDE [Concomitant]
  16. ACETAMINOPHEN AND CODEINE NO.3 [Concomitant]
  17. LISINOPRIL [Concomitant]
  18. GLYBURIDE W/METFORMIN (GLYBURIDE W/METFORMIN) [Concomitant]
  19. HYDROXYZINE PAMOATE [Concomitant]
  20. THIOTHIXENE (THIOTHIXENE) [Concomitant]
  21. GLUCOVANCE [Concomitant]
  22. NAPROXEN SODIUM [Concomitant]
  23. NORTRIPTYLINE (NORTRIPTYLINE) [Concomitant]
  24. APAP W/HYDROCODONE (APAP W/HYDROCODONE) [Concomitant]

REACTIONS (15)
  - ACCIDENT [None]
  - ARTERIOSCLEROSIS [None]
  - DIABETES MELLITUS [None]
  - GLYCOSYLATED HAEMOGLOBIN INCREASED [None]
  - HAEMATOCHEZIA [None]
  - HAEMOPTYSIS [None]
  - HAEMORRHOIDS [None]
  - HYPERGLYCAEMIA [None]
  - HYPERTENSION [None]
  - HYPOGLYCAEMIA [None]
  - OCCULT BLOOD POSITIVE [None]
  - THERMAL BURN [None]
  - VISION BLURRED [None]
  - WEIGHT INCREASED [None]
  - WHITE BLOOD CELL COUNT INCREASED [None]
